FAERS Safety Report 9154669 (Version 1)
Quarter: 2013Q1

REPORT INFORMATION
  Report Type: Report from Study
  Country: US (occurrence: US)
  Receive Date: 20130311
  Receipt Date: 20130311
  Transmission Date: 20140127
  Serious: No
  Sender: FDA-Public Use
  Company Number: US-ABBOTT-12P-163-0919864-00

PATIENT
  Age: 16 Year
  Sex: Female

DRUGS (1)
  1. LUPRON DEPOT 11.25 MG [Suspect]
     Indication: PRODUCT USED FOR UNKNOWN INDICATION
     Route: 030
     Dates: start: 20120222

REACTIONS (2)
  - Rash [Recovered/Resolved]
  - Rash macular [Recovered/Resolved]
